FAERS Safety Report 11719776 (Version 1)
Quarter: 2015Q4

REPORT INFORMATION
  Report Type: Spontaneous
  Country: CA (occurrence: CA)
  Receive Date: 20151110
  Receipt Date: 20151110
  Transmission Date: 20160304
  Serious: Yes (Other)
  Sender: FDA-Public Use
  Company Number: CA-009507513-1511CAN004217

PATIENT
  Sex: Female
  Weight: 71.2 kg

DRUGS (1)
  1. KEYTRUDA [Suspect]
     Active Substance: PEMBROLIZUMAB
     Indication: METASTATIC MALIGNANT MELANOMA
     Dosage: 142.4 MG, Q3W
     Route: 042

REACTIONS (3)
  - Drug ineffective [Unknown]
  - Metastatic malignant melanoma [Unknown]
  - Incorrect dose administered [Unknown]
